FAERS Safety Report 6749222-5 (Version None)
Quarter: 2010Q2

REPORT INFORMATION
  Report Type: 
  Country: None (occurrence: None)
  Receive Date: 20100601
  Receipt Date: 20100501
  Transmission Date: 20101027
  Serious: No
  Sender: FDA-Public Use
  Company Number: US-BAYER-201024824GPV

PATIENT
  Age: 51 Year
  Sex: Female

DRUGS (2)
  1. NAPROSYN [Suspect]
     Indication: PAIN
     Route: 065
  2. VICODIN [Suspect]
     Indication: PAIN
     Route: 065

REACTIONS (1)
  - NAUSEA [None]
